FAERS Safety Report 17017850 (Version 4)
Quarter: 2021Q3

REPORT INFORMATION
  Report Type: Spontaneous
  Country: GB (occurrence: GB)
  Receive Date: 20191111
  Receipt Date: 20210816
  Transmission Date: 20211014
  Serious: Yes (Death, Other)
  Sender: FDA-Public Use
  Company Number: GB-PFIZER INC-2019483788

PATIENT
  Age: 77 Year
  Sex: Male
  Weight: 82.8 kg

DRUGS (11)
  1. COTRIMOXAZOLE [Concomitant]
     Active Substance: SULFAMETHOXAZOLE\TRIMETHOPRIM
     Indication: ANTIBIOTIC PROPHYLAXIS
     Dosage: 480 MG, DAILY
     Route: 048
  2. IBRUTINIB [Concomitant]
     Active Substance: IBRUTINIB
     Indication: MANTLE CELL LYMPHOMA
     Dosage: 560 MG, 1X/DAY
     Route: 048
  3. RAMIPRIL. [Concomitant]
     Active Substance: RAMIPRIL
     Indication: HYPERTENSION
     Dosage: 5 MG, DAILY
     Route: 048
  4. TINZAPARIN [Concomitant]
     Active Substance: TINZAPARIN
     Indication: THROMBOSIS PROPHYLAXIS
     Dosage: 4500 IU, DAILY
     Route: 058
  5. TAMSULOSIN [Concomitant]
     Active Substance: TAMSULOSIN
     Indication: BENIGN PROSTATIC HYPERPLASIA
     Dosage: 400 UG, DAILY
     Route: 048
  6. METHYLPREDNISOLONE SODIUM SUCCINATE. [Suspect]
     Active Substance: METHYLPREDNISOLONE SODIUM SUCCINATE
     Indication: MANTLE CELL LYMPHOMA RECURRENT
     Dosage: 1 G, 1X/DAY
     Route: 042
     Dates: start: 20190426, end: 20190427
  7. ASPIRIN (E.C.) [Concomitant]
     Active Substance: ASPIRIN
     Indication: MYOCARDIAL ISCHAEMIA
     Dosage: 75 MG, DAILY
     Route: 048
  8. DILTIAZEM. [Concomitant]
     Active Substance: DILTIAZEM
     Indication: HYPERTENSION
     Dosage: 60 MG, 3X/DAY
     Route: 048
  9. FINASTERIDE. [Concomitant]
     Active Substance: FINASTERIDE
     Dosage: 5 MG, DAILY
     Route: 048
  10. LANSOPRAZOLE. [Concomitant]
     Active Substance: LANSOPRAZOLE
     Indication: GASTROOESOPHAGEAL REFLUX DISEASE
     Dosage: 30 MG, DAILY
     Route: 048
  11. SIMVASTATIN. [Concomitant]
     Active Substance: SIMVASTATIN
     Indication: HYPERCHOLESTEROLAEMIA
     Dosage: 20 MG, DAILY
     Route: 048

REACTIONS (3)
  - Tumour lysis syndrome [Fatal]
  - Mantle cell lymphoma stage IV [Fatal]
  - Product dose omission in error [Fatal]

NARRATIVE: CASE EVENT DATE: 201904
